FAERS Safety Report 4417730-8 (Version None)
Quarter: 2004Q3

REPORT INFORMATION
  Report Type: 
  Country: None (occurrence: None)
  Receive Date: 20040803
  Receipt Date: 20040715
  Transmission Date: 20050211
  Serious: Yes (Other)
  Sender: FDA-Public Use
  Company Number: QUIN-281

PATIENT
  Age: 40 Year
  Sex: Male

DRUGS (1)
  1. SOLARAZE [Suspect]
     Indication: ACTINIC KERATOSIS
     Dosage: 1 APPLICATION BID TP
     Route: 061
     Dates: start: 20040401, end: 20040501

REACTIONS (2)
  - BACTERIAL INFECTION [None]
  - CHONDROPATHY [None]
